FAERS Safety Report 10798250 (Version 1)
Quarter: 2015Q1

REPORT INFORMATION
  Report Type: Spontaneous
  Country: US (occurrence: US)
  Receive Date: 20150216
  Receipt Date: 20150216
  Transmission Date: 20150721
  Serious: No
  Sender: FDA-Public Use
  Company Number: US-PFIZER INC-2015058263

PATIENT
  Age: 68 Year
  Sex: Female

DRUGS (3)
  1. NEURONTIN [Suspect]
     Active Substance: GABAPENTIN
     Indication: NEUROPATHY PERIPHERAL
     Dosage: 100MG OR 300MG 3 TIMES A DAY
     Route: 048
     Dates: start: 1995, end: 201412
  2. NOVOLOG [Concomitant]
     Active Substance: INSULIN ASPART
     Indication: DIABETES MELLITUS
  3. LANTUS [Concomitant]
     Active Substance: INSULIN GLARGINE
     Indication: DIABETES MELLITUS

REACTIONS (10)
  - Drug ineffective [Unknown]
  - Sinusitis [Unknown]
  - Malaise [Recovering/Resolving]
  - Burning sensation [Recovering/Resolving]
  - Influenza [Recovered/Resolved]
  - Acute sinusitis [Unknown]
  - Bronchitis [Unknown]
  - Paraesthesia [Recovering/Resolving]
  - Insomnia [Recovering/Resolving]
  - Pain in extremity [Recovering/Resolving]

NARRATIVE: CASE EVENT DATE: 2014
